FAERS Safety Report 9422739 (Version 1)
Quarter: 2013Q3

REPORT INFORMATION
  Report Type: Spontaneous
  Country: US (occurrence: US)
  Receive Date: 20130726
  Receipt Date: 20130726
  Transmission Date: 20140515
  Serious: No
  Sender: FDA-Public Use
  Company Number: US-MYLANLABS-2013S1002615

PATIENT
  Age: 54 Year
  Sex: Female

DRUGS (6)
  1. TRAMADOL HYDROCHLORIDE TABLETS [Suspect]
     Indication: PAIN
     Route: 048
     Dates: start: 201212
  2. TRAMADOL HYDROCHLORIDE TABLETS [Suspect]
     Indication: FIBROMYALGIA
     Route: 048
     Dates: start: 201212
  3. LEVETIRACETAM TABLETS [Suspect]
     Indication: COMPLEX PARTIAL SEIZURES
     Route: 048
     Dates: start: 201212
  4. GABAPENTIN [Concomitant]
     Dosage: 5X A DAY
  5. LEVOXYL [Concomitant]
     Dosage: 5X A DAY
  6. MULTIVITAMINS [Concomitant]

REACTIONS (7)
  - Abdominal pain [Not Recovered/Not Resolved]
  - Abdominal discomfort [Not Recovered/Not Resolved]
  - Abdominal distension [Not Recovered/Not Resolved]
  - Flatulence [Not Recovered/Not Resolved]
  - Reaction to drug excipients [Not Recovered/Not Resolved]
  - Abdominal pain upper [Not Recovered/Not Resolved]
  - Diarrhoea [Not Recovered/Not Resolved]
